FAERS Safety Report 18973750 (Version 1)
Quarter: 2021Q1

REPORT INFORMATION
  Report Type: Spontaneous
  Country: US (occurrence: US)
  Receive Date: 20210305
  Receipt Date: 20210305
  Transmission Date: 20210420
  Serious: No
  Sender: FDA-Public Use
  Company Number: ALC2020US000698

PATIENT

DRUGS (1)
  1. BETADINE [Suspect]
     Active Substance: POVIDONE-IODINE
     Indication: EYE DISORDER PROPHYLAXIS
     Dosage: UNK
     Route: 065

REACTIONS (2)
  - Lacrimation increased [Unknown]
  - Eye irritation [Unknown]
